FAERS Safety Report 25266971 (Version 1)
Quarter: 2025Q2

REPORT INFORMATION
  Report Type: Spontaneous
  Country: JP (occurrence: None)
  Receive Date: 20250505
  Receipt Date: 20250505
  Transmission Date: 20250716
  Serious: Yes (Hospitalization, Other)
  Sender: NATCO PHARMA
  Company Number: JP-NATCOUSA-2025-NATCOUSA-000283

PATIENT
  Age: 70 Year
  Sex: Female

DRUGS (2)
  1. ANASTROZOLE [Suspect]
     Active Substance: ANASTROZOLE
     Indication: Breast cancer stage I
     Dosage: 1 MG/DAY
  2. HERBALS [Suspect]
     Active Substance: HERBALS
     Indication: Product used for unknown indication

REACTIONS (1)
  - Interstitial lung disease [Recovered/Resolved]
